FAERS Safety Report 7338058-2 (Version None)
Quarter: 2011Q1

REPORT INFORMATION
  Report Type: 
  Country: None (occurrence: None)
  Receive Date: 20110308
  Receipt Date: 20110223
  Transmission Date: 20110831
  Serious: Yes (Death, Hospitalization, Other)
  Sender: FDA-Public Use
  Company Number: PHHY2010JP42987

PATIENT
  Sex: Male

DRUGS (11)
  1. AFINITOR [Suspect]
     Dosage: 10 MG DAILY
     Route: 048
     Dates: end: 20100701
  2. SORAFENIB TOSILATE [Concomitant]
     Dosage: 800 MG, UNK
     Route: 048
     Dates: start: 20080529, end: 20091101
  3. SUNITINIB MALATE [Concomitant]
     Dosage: 37.5 MG, UNK
     Route: 048
     Dates: start: 20091130, end: 20100412
  4. PROMAC                                  /JPN/ [Concomitant]
     Dosage: 150 MG, UNK
     Route: 048
     Dates: start: 20100401, end: 20101026
  5. MEPTIN [Concomitant]
     Dosage: 100 UG, UNK
     Route: 048
     Dates: start: 20100401, end: 20101026
  6. AFINITOR [Suspect]
     Dosage: 10 MG DAILY
     Route: 048
     Dates: end: 20101118
  7. DECADRON [Concomitant]
     Dosage: 4 MG, UNK
     Route: 048
     Dates: start: 20101124, end: 20101207
  8. AFINITOR [Suspect]
     Indication: RENAL CELL CARCINOMA
     Dosage: 10 MG, DAILY
     Route: 048
     Dates: start: 20100423, end: 20100506
  9. INTERFERON ALFA [Concomitant]
     Dosage: 3000000 IU, UNK
     Dates: start: 20031101
  10. AFINITOR [Suspect]
     Dosage: 10 MG, DAILY
     Route: 048
     Dates: start: 20100525, end: 20100601
  11. TECELEUKIN [Concomitant]
     Dosage: 700000 IU, UNK
     Dates: start: 20060515, end: 20060701

REACTIONS (5)
  - NEOPLASM MALIGNANT [None]
  - CEREBRAL HAEMORRHAGE [None]
  - PNEUMONIA [None]
  - METASTASES TO CENTRAL NERVOUS SYSTEM [None]
  - PLATELET COUNT DECREASED [None]
